FAERS Safety Report 5960545-X (Version None)
Quarter: 2008Q4

REPORT INFORMATION
  Report Type: 
  Country: None (occurrence: None)
  Receive Date: 20081120
  Receipt Date: 20081114
  Transmission Date: 20090506
  Serious: Yes (Hospitalization)
  Sender: FDA-Public Use
  Company Number: US-GENENTECH-268396

PATIENT
  Sex: Female
  Weight: 72 kg

DRUGS (7)
  1. RITUXIMAB [Suspect]
     Indication: B-CELL LYMPHOMA
     Dosage: 375 MG/M2, UNK
     Route: 042
     Dates: start: 20080429, end: 20080525
  2. VELCADE [Suspect]
     Indication: LYMPHOMA
     Dosage: 1.6 MG/M2, UNK
     Route: 042
     Dates: start: 20080429, end: 20080525
  3. BENDAMUSTINE [Suspect]
     Indication: LYMPHOMA
     Dosage: 70 MG/M2, UNK
     Route: 042
     Dates: start: 20080429, end: 20080430
  4. VALTREX [Concomitant]
     Indication: DRUG USE FOR UNKNOWN INDICATION
  5. LOVENOX [Concomitant]
     Indication: DRUG USE FOR UNKNOWN INDICATION
  6. MULTI-VITAMIN [Concomitant]
     Indication: DRUG USE FOR UNKNOWN INDICATION
  7. TRIAMCINOLONE [Suspect]

REACTIONS (1)
  - DERMATITIS EXFOLIATIVE [None]
